FAERS Safety Report 5326331-9 (Version None)
Quarter: 2007Q2

REPORT INFORMATION
  Report Type: 
  Country: None (occurrence: None)
  Receive Date: 20070516
  Receipt Date: 20070509
  Transmission Date: 20071010
  Serious: Yes (Other)
  Sender: FDA-Public Use
  Company Number: A0640620A

PATIENT
  Sex: Male
  Weight: 1.5 kg

DRUGS (4)
  1. PAXIL [Suspect]
     Indication: POST-TRAUMATIC STRESS DISORDER
     Dosage: 40MG PER DAY
  2. PAROXETINE HYDROCHLORIDE [Suspect]
     Indication: DEPRESSION
     Dosage: 40MG PER DAY
  3. PHENOBARBITAL TAB [Concomitant]
  4. XANAX [Concomitant]

REACTIONS (11)
  - ATTENTION DEFICIT/HYPERACTIVITY DISORDER [None]
  - CAESAREAN SECTION [None]
  - DIARRHOEA [None]
  - DRUG EXPOSURE DURING PREGNANCY [None]
  - GASTROOESOPHAGEAL REFLUX DISEASE [None]
  - LEARNING DISABILITY [None]
  - PREMATURE BABY [None]
  - SMALL FOR DATES BABY [None]
  - UNDERWEIGHT [None]
  - VISUAL ACUITY REDUCED [None]
  - VOMITING [None]
